FAERS Safety Report 24308781 (Version 1)
Quarter: 2024Q3

REPORT INFORMATION
  Report Type: Spontaneous
  Country: US (occurrence: None)
  Receive Date: 20240911
  Receipt Date: 20240911
  Transmission Date: 20241017
  Serious: No
  Sender: Public
  Company Number: None

PATIENT
  Age: 20 Year
  Sex: Female

DRUGS (3)
  1. TEZEPELUMAB [Suspect]
     Active Substance: TEZEPELUMAB
     Indication: Asthma
     Dosage: OTHER FREQUENCY : Q 28 DAYS;?
     Route: 058
     Dates: start: 20240807
  2. NUCALA [Suspect]
     Active Substance: MEPOLIZUMAB
  3. DUPIXENT [Suspect]
     Active Substance: DUPILUMAB

REACTIONS (2)
  - Injection site bruising [None]
  - Injection site swelling [None]

NARRATIVE: CASE EVENT DATE: 20240911
